FAERS Safety Report 4940099-7 (Version None)
Quarter: 2006Q1

REPORT INFORMATION
  Report Type: 
  Country: None (occurrence: None)
  Receive Date: 20060310
  Receipt Date: 20060227
  Transmission Date: 20060701
  Serious: Yes (Hospitalization)
  Sender: FDA-Public Use
  Company Number: PHEH2006US02686

PATIENT
  Age: 17 Year
  Sex: Female

DRUGS (2)
  1. EXJADE [Suspect]
     Indication: CHELATION THERAPY
     Dosage: 1500 MG, QD
     Dates: start: 20060202, end: 20060227
  2. ASPIRIN [Concomitant]
     Dosage: UNK, QD

REACTIONS (7)
  - DISTURBANCE IN ATTENTION [None]
  - FEELING ABNORMAL [None]
  - LETHARGY [None]
  - MEMORY IMPAIRMENT [None]
  - MOOD SWINGS [None]
  - PAIN [None]
  - TRANSIENT ISCHAEMIC ATTACK [None]
